FAERS Safety Report 5756007-5 (Version None)
Quarter: 2008Q2

REPORT INFORMATION
  Report Type: 
  Country: None (occurrence: None)
  Receive Date: 20080602
  Receipt Date: 20080428
  Transmission Date: 20081010
  Serious: No
  Sender: FDA-Public Use
  Company Number: US-ABBOTT-08P-163-0449543-00

PATIENT
  Sex: Male
  Weight: 86.26 kg

DRUGS (4)
  1. ZEMPLAR [Suspect]
     Indication: ANAEMIA
     Route: 048
     Dates: start: 20080201, end: 20080421
  2. DOXAZOSIN MESYLATE [Concomitant]
     Indication: PROSTATIC DISORDER
     Route: 048
  3. FUROSEMIDE [Concomitant]
     Indication: BLOOD PRESSURE
     Route: 048
  4. SIMDASTATIN [Concomitant]
     Indication: BLOOD CHOLESTEROL
     Route: 048

REACTIONS (5)
  - ANOREXIA [None]
  - CAPILLARY DISORDER [None]
  - ENURESIS [None]
  - RASH MACULAR [None]
  - SOMNOLENCE [None]
